FAERS Safety Report 13707251 (Version 1)
Quarter: 2017Q2

REPORT INFORMATION
  Report Type: Spontaneous
  Country: US (occurrence: US)
  Receive Date: 20170630
  Receipt Date: 20170630
  Transmission Date: 20170830
  Serious: Yes (Hospitalization)
  Sender: FDA-Public Use
  Company Number: US-INCYTE CORPORATION-2017IN005148

PATIENT

DRUGS (2)
  1. JAKAFI [Suspect]
     Active Substance: RUXOLITINIB
     Indication: MYELOFIBROSIS
     Dosage: 5 MG, BID
     Route: 048
  2. JAKAFI [Suspect]
     Active Substance: RUXOLITINIB
     Dosage: 15MG(1/2 TABLET IN AM;1/2 TABLET IN PM)
     Route: 048

REACTIONS (4)
  - Pneumonia [Unknown]
  - Incorrect dose administered [Unknown]
  - Hypoxia [Unknown]
  - Influenza [Unknown]

NARRATIVE: CASE EVENT DATE: 2017
